FAERS Safety Report 10016124 (Version 2)
Quarter: 2014Q2

REPORT INFORMATION
  Report Type: Spontaneous
  Country: GR (occurrence: GR)
  Receive Date: 20140317
  Receipt Date: 20140402
  Transmission Date: 20141212
  Serious: Yes (Other)
  Sender: FDA-Public Use
  Company Number: GR-PFIZER INC-2014076004

PATIENT
  Age: 54 Year
  Sex: Female

DRUGS (2)
  1. METHYLPREDNISOLONE [Suspect]
     Indication: BEHCET^S SYNDROME
     Dosage: 32 MG, DAILY
     Dates: start: 2000
  2. INFLIXIMAB [Suspect]
     Indication: BEHCET^S SYNDROME
     Dosage: 5 MG/KG, UNK
     Dates: start: 2000

REACTIONS (2)
  - Ocular vasculitis [Unknown]
  - Condition aggravated [Unknown]
